FAERS Safety Report 18817347 (Version 1)
Quarter: 2021Q1

REPORT INFORMATION
  Report Type: Spontaneous
  Country: JP (occurrence: JP)
  Receive Date: 20210201
  Receipt Date: 20210201
  Transmission Date: 20210419
  Serious: Yes (Other)
  Sender: FDA-Public Use
  Company Number: JP-LUPIN PHARMACEUTICALS INC.-2021-00926

PATIENT
  Age: 63 Year
  Sex: Female
  Weight: 54.2 kg

DRUGS (3)
  1. MORPHINE [Suspect]
     Active Substance: MORPHINE
     Dosage: 40 MILLIGRAM, QD (DOSE DECREASED)
     Route: 042
  2. MORPHINE [Suspect]
     Active Substance: MORPHINE
     Indication: ABDOMINAL DISTENSION
     Dosage: 40 MILLIGRAM, QD (FORMULATION: INJECTION)
     Route: 042
  3. MORPHINE [Suspect]
     Active Substance: MORPHINE
     Indication: CANCER PAIN
     Dosage: 60 MILLIGRAM, QD (FORMULATION: INJECTION)
     Route: 042

REACTIONS (3)
  - Quality of life decreased [Unknown]
  - Somnolence [Unknown]
  - Sedation [Unknown]
